FAERS Safety Report 7768388-1 (Version None)
Quarter: 2011Q3

REPORT INFORMATION
  Report Type: 
  Country: None (occurrence: None)
  Receive Date: 20110922
  Receipt Date: 20101022
  Transmission Date: 20111222
  Serious: No
  Sender: FDA-Public Use
  Company Number: US-ASTRAZENECA-2010SE50187

PATIENT
  Sex: Female

DRUGS (6)
  1. SEROQUEL XR [Suspect]
     Indication: BIPOLAR DISORDER
     Dosage: TAKES 400 MG PLUS CUTS A 100 MG EXTENDED RELEASE TABLET IN HALF
     Route: 048
     Dates: start: 20070101
  2. LAMICTAL [Concomitant]
  3. AMBIEN [Concomitant]
  4. HYDROCODONE [Concomitant]
     Indication: BACK PAIN
  5. LORAZEPAM [Concomitant]
  6. SOMA [Concomitant]
     Indication: BACK PAIN

REACTIONS (2)
  - WRONG TECHNIQUE IN DRUG USAGE PROCESS [None]
  - LARYNGITIS [None]
